FAERS Safety Report 9764625 (Version 1)
Quarter: 2013Q4

REPORT INFORMATION
  Report Type: Report from Study
  Country: US (occurrence: US)
  Receive Date: 20131217
  Receipt Date: 20131217
  Transmission Date: 20140711
  Serious: Yes (Other)
  Sender: FDA-Public Use
  Company Number: US-ROCHE-1320374

PATIENT
  Sex: Male

DRUGS (1)
  1. LUCENTIS [Suspect]
     Indication: MACULAR OEDEMA
     Dosage: RIGHT EYE
     Route: 065
     Dates: start: 2009

REACTIONS (2)
  - Deafness [Unknown]
  - Hypoacusis [Unknown]
